FAERS Safety Report 16721374 (Version 1)
Quarter: 2019Q3

REPORT INFORMATION
  Report Type: Spontaneous
  Country: US (occurrence: US)
  Receive Date: 20190820
  Receipt Date: 20190820
  Transmission Date: 20191005
  Serious: Yes (Other)
  Sender: FDA-Public Use
  Company Number: US-SAGENT PHARMACEUTICALS-2019SAG001570

PATIENT

DRUGS (3)
  1. LEUCOVORIN CALCIUM. [Suspect]
     Active Substance: LEUCOVORIN CALCIUM
     Indication: COLON CANCER
  2. OXALIPLATIN. [Suspect]
     Active Substance: OXALIPLATIN
     Indication: COLON CANCER
  3. 5 FLUORO URACIL [Suspect]
     Active Substance: FLUOROURACIL
     Indication: COLON CANCER

REACTIONS (3)
  - Blindness transient [Unknown]
  - Optic disc hyperaemia [Unknown]
  - Optic disc disorder [Unknown]
